FAERS Safety Report 9976044 (Version 1)
Quarter: 2014Q1

REPORT INFORMATION
  Report Type: Spontaneous
  Country: US (occurrence: US)
  Receive Date: 20140306
  Receipt Date: 20140306
  Transmission Date: 20141002
  Serious: No
  Sender: FDA-Public Use
  Company Number: US-PFIZER INC-2013368785

PATIENT
  Age: 65 Year
  Sex: Male

DRUGS (1)
  1. SUTENT [Suspect]
     Indication: HEPATIC CANCER
     Dosage: 25 MG, DAILY
     Dates: start: 20130906, end: 2013

REACTIONS (3)
  - Disease progression [Unknown]
  - Hepatic cancer [Unknown]
  - Off label use [Unknown]
